FAERS Safety Report 14795158 (Version 3)
Quarter: 2018Q3

REPORT INFORMATION
  Report Type: Spontaneous
  Country: EG (occurrence: EG)
  Receive Date: 20180423
  Receipt Date: 20180724
  Transmission Date: 20181010
  Serious: Yes (Other)
  Sender: FDA-Public Use
  Company Number: EG-BEH-2018089984

PATIENT
  Age: 30 Month
  Sex: Male
  Weight: 12 kg

DRUGS (6)
  1. ZYRTEC [Concomitant]
     Active Substance: CETIRIZINE HYDROCHLORIDE
     Indication: URTICARIA PAPULAR
     Dosage: UNK
     Route: 065
     Dates: start: 20180418, end: 20180418
  2. PRIVIGEN [Suspect]
     Active Substance: HUMAN IMMUNOGLOBULIN G
     Indication: PNEUMONIA
  3. IMIPENEM [Concomitant]
     Active Substance: IMIPENEM
     Indication: PNEUMONIA
     Dosage: 15 MG/KG, TID
     Route: 042
  4. ZYRTEC [Concomitant]
     Active Substance: CETIRIZINE HYDROCHLORIDE
     Indication: DERMATITIS ALLERGIC
  5. PRIVIGEN [Suspect]
     Active Substance: HUMAN IMMUNOGLOBULIN G
     Indication: PRIMARY IMMUNODEFICIENCY SYNDROME
     Dosage: 0.5 MG/KG, SINGLE
     Route: 042
     Dates: start: 20180419, end: 20180419
  6. CIPROFLOXACIN. [Concomitant]
     Active Substance: CIPROFLOXACIN
     Indication: PNEUMONIA
     Dosage: 10 MG/KG, BID
     Route: 042

REACTIONS (5)
  - Angioedema [Recovered/Resolved]
  - Swelling face [Recovered/Resolved]
  - Anaphylactic reaction [Recovered/Resolved]
  - Rash [Recovered/Resolved]
  - Flushing [Recovered/Resolved]

NARRATIVE: CASE EVENT DATE: 20180419
